FAERS Safety Report 4729023-X (Version None)
Quarter: 2005Q3

REPORT INFORMATION
  Report Type: 
  Country: None (occurrence: None)
  Receive Date: 20050729
  Receipt Date: 20050128
  Transmission Date: 20060218
  Serious: Yes (Hospitalization)
  Sender: FDA-Public Use
  Company Number: US-GLAXOSMITHKLINE-A0542845A

PATIENT
  Age: 45 Year
  Sex: Female

DRUGS (1)
  1. IMITREX [Suspect]
     Indication: MIGRAINE
     Dosage: 100MG VARIABLE DOSE
     Dates: end: 20050128

REACTIONS (2)
  - CHEST DISCOMFORT [None]
  - ELECTROCARDIOGRAM ABNORMAL [None]
